FAERS Safety Report 19106335 (Version 2)
Quarter: 2021Q2

REPORT INFORMATION
  Report Type: Spontaneous
  Country: BR (occurrence: BR)
  Receive Date: 20210408
  Receipt Date: 20210416
  Transmission Date: 20210717
  Serious: Yes (Other)
  Sender: FDA-Public Use
  Company Number: BR-CELLTRION INC.-2021BR004557

PATIENT

DRUGS (2)
  1. SALINE SOLUTION [Suspect]
     Active Substance: SODIUM CHLORIDE
     Indication: PRODUCT USED FOR UNKNOWN INDICATION
     Dosage: 206 ML, 1 INFUSION EACH 8 WEEKS (START DATE: MORE OR LESS 5 YEARS AGO)
     Route: 042
  2. REMSIMA [Suspect]
     Active Substance: INFLIXIMAB
     Indication: PSORIASIS
     Dosage: 1 INFUSION EACH 8 WEEKS (42 ML OF REMSIMA WITH 206 ML OF SALINE SOLUTION)
     Route: 042
     Dates: start: 20210112, end: 20210409

REACTIONS (2)
  - Pneumonia [Recovered/Resolved]
  - Intentional dose omission [Unknown]

NARRATIVE: CASE EVENT DATE: 202011
